FAERS Safety Report 12822460 (Version 1)
Quarter: 2016Q4

REPORT INFORMATION
  Report Type: Spontaneous
  Country: CN (occurrence: CN)
  Receive Date: 20161007
  Receipt Date: 20161007
  Transmission Date: 20170207
  Serious: Yes (Death, Other)
  Sender: FDA-Public Use
  Company Number: CN-SUN PHARMACEUTICAL INDUSTRIES LTD-2016RR-116459

PATIENT
  Age: 34 Year
  Sex: Male

DRUGS (12)
  1. DICYCLOPLATIN [Suspect]
     Active Substance: INVESTIGATIONAL PRODUCT
     Indication: LUNG SQUAMOUS CELL CARCINOMA STAGE III
     Dosage: 750 MG, ON DAY 1 OF EACH 2-WEEK CYCLE
     Route: 065
     Dates: start: 20070528, end: 20070912
  2. PEMETREXED [Suspect]
     Active Substance: PEMETREXED
     Indication: LUNG SQUAMOUS CELL CARCINOMA METASTATIC
     Dosage: 1000 MG, ON DAY 1
     Route: 065
     Dates: start: 20080226, end: 20080614
  3. CARBOPLATIN. [Suspect]
     Active Substance: CARBOPLATIN
     Dosage: 500 MG, ON DAY 1
     Route: 042
     Dates: start: 20100123, end: 20100220
  4. CISPLATIN. [Suspect]
     Active Substance: CISPLATIN
     Dosage: 40 MG, ON DAY 3, SIX CYCLES
     Route: 065
     Dates: start: 20080226, end: 20080614
  5. CARBOPLATIN. [Suspect]
     Active Substance: CARBOPLATIN
     Indication: LUNG SQUAMOUS CELL CARCINOMA METASTATIC
     Dosage: 500 MG, ON DAY 1
     Route: 042
     Dates: start: 20091211, end: 20100103
  6. GEFITINIB [Suspect]
     Active Substance: GEFITINIB
     Indication: LUNG SQUAMOUS CELL CARCINOMA METASTATIC
     Dosage: UNK
     Route: 048
     Dates: start: 201006
  7. DOCETAXEL. [Suspect]
     Active Substance: DOCETAXEL
     Indication: LUNG SQUAMOUS CELL CARCINOMA METASTATIC
     Dosage: 140 MG, ON DAY 1
     Route: 042
     Dates: start: 20091211, end: 20100103
  8. CISPLATIN. [Suspect]
     Active Substance: CISPLATIN
     Dosage: 140 MG, DAY 1, FOR THE FIRST 12 CYCLES
     Route: 065
  9. DOCETAXEL. [Suspect]
     Active Substance: DOCETAXEL
     Dosage: 140 MG, ON DAY 1
     Route: 042
     Dates: start: 20100123, end: 20100220
  10. PACLITAXEL. [Suspect]
     Active Substance: PACLITAXEL
     Indication: LUNG SQUAMOUS CELL CARCINOMA STAGE III
     Dosage: 300 MG, 6 CYCLES
     Route: 065
     Dates: start: 20070528, end: 20070912
  11. CISPLATIN. [Suspect]
     Active Substance: CISPLATIN
     Indication: LUNG SQUAMOUS CELL CARCINOMA METASTATIC
     Dosage: 50 MG, ON DAYS 1 AND 2, SIX CYCLES
     Route: 065
     Dates: start: 20080226, end: 20080614
  12. ERLOTINIB [Concomitant]
     Active Substance: ERLOTINIB
     Indication: LUNG SQUAMOUS CELL CARCINOMA METASTATIC
     Dosage: 150 MG DAILY
     Route: 048
     Dates: start: 200807, end: 200912

REACTIONS (7)
  - Nausea [Unknown]
  - Bone marrow failure [Unknown]
  - Gastrointestinal disorder [Unknown]
  - Disease progression [Fatal]
  - Neutropenia [Unknown]
  - Vomiting [Unknown]
  - Drug ineffective [Not Recovered/Not Resolved]
